FAERS Safety Report 7713608-2 (Version None)
Quarter: 2011Q3

REPORT INFORMATION
  Report Type: 
  Country: None (occurrence: None)
  Receive Date: 20110826
  Receipt Date: 20110817
  Transmission Date: 20111222
  Serious: Yes (Death, Other)
  Sender: FDA-Public Use
  Company Number: GB-PURDUE-USA-2011-0071408

PATIENT
  Age: 60 Year
  Sex: Male

DRUGS (4)
  1. TRAMADOL HCL [Suspect]
     Indication: PRODUCT USED FOR UNKNOWN INDICATION
  2. DIHYDROCODEINE BITARTRATE INJ [Suspect]
     Indication: PRODUCT USED FOR UNKNOWN INDICATION
  3. ACETAMINOPHEN [Suspect]
     Indication: PRODUCT USED FOR UNKNOWN INDICATION
  4. MORPHINE [Suspect]
     Indication: PRODUCT USED FOR UNKNOWN INDICATION

REACTIONS (3)
  - BRONCHOPNEUMONIA [None]
  - RESPIRATORY DEPRESSION [None]
  - CONDITION AGGRAVATED [None]
